FAERS Safety Report 8010599-4 (Version None)
Quarter: 2011Q4

REPORT INFORMATION
  Report Type: 
  Country: None (occurrence: None)
  Receive Date: 20111228
  Receipt Date: 20111222
  Transmission Date: 20120403
  Serious: Yes (Hospitalization)
  Sender: FDA-Public Use
  Company Number: PHEH2011US08116

PATIENT
  Sex: Female

DRUGS (12)
  1. IBUPROFEN [Concomitant]
     Dosage: 200 MG, UNK PRN
     Route: 048
  2. VITAMIN D [Concomitant]
     Dosage: 1 UKN, QD
  3. RECLAST [Suspect]
  4. DEXAMETHASONE [Concomitant]
     Dosage: 0.5 MG/5 ML
  5. CALCIUM CITRATE [Concomitant]
     Dosage: 600 MG, UNK
  6. TRAZODONE HCL [Concomitant]
  7. RECLAST [Suspect]
     Indication: OSTEOPOROSIS
     Dosage: 5 MG, UNK
     Route: 042
     Dates: start: 20110927
  8. LISINOPRIL [Concomitant]
     Dosage: 20 MG, UNK
  9. TERAZOSIN HCL [Concomitant]
     Dosage: 5 MG, UNK
  10. MULTI-VITAMINS [Concomitant]
     Dosage: UNK UKN, UNK
  11. VITAMIN E [Concomitant]
     Dosage: 400 MG, UNK
  12. CALCIUM ACETATE [Concomitant]

REACTIONS (15)
  - ARTHRALGIA [None]
  - HYPOKINESIA [None]
  - ABASIA [None]
  - DYSSTASIA [None]
  - ADRENAL INSUFFICIENCY [None]
  - PAIN [None]
  - BLOOD GLUCOSE INCREASED [None]
  - DEHYDRATION [None]
  - URINARY INCONTINENCE [None]
  - POLLAKIURIA [None]
  - HYPERTENSION [None]
  - CRYING [None]
  - JOINT DISLOCATION [None]
  - OSTEOPENIA [None]
  - PAIN IN EXTREMITY [None]
